FAERS Safety Report 24701610 (Version 2)
Quarter: 2025Q1

REPORT INFORMATION
  Report Type: Spontaneous
  Country: JP (occurrence: JP)
  Receive Date: 20241205
  Receipt Date: 20250102
  Transmission Date: 20250409
  Serious: Yes (Other)
  Sender: JOURNEY MEDICAL CORPORATION
  Company Number: JP-JOURNEY MEDICAL CORPORATION-2023JNY00226

PATIENT
  Age: 44 Year
  Sex: Female

DRUGS (6)
  1. QBREXZA [Suspect]
     Active Substance: GLYCOPYRRONIUM TOSYLATE
     Indication: Hyperhidrosis
     Dosage: 62.5 MG (2.5G X 1 TIME); 1X/DAY
     Route: 061
     Dates: start: 20230830, end: 20230831
  2. GLYCOSAMINOGLYCANS [Concomitant]
     Active Substance: GLYCOSAMINOGLYCANS
     Indication: Eczema
     Route: 061
     Dates: start: 20230712
  3. DESLORATADINE [Concomitant]
     Active Substance: DESLORATADINE
     Indication: Intertrigo
     Route: 048
     Dates: start: 20230712
  4. BETAMETHASONE DIPROPIONATE [Concomitant]
     Active Substance: BETAMETHASONE DIPROPIONATE
     Indication: Intertrigo
     Route: 061
     Dates: start: 20230712
  5. DIACORT [DIFLORASONE DIACETATE] [Concomitant]
     Indication: Intertrigo
     Route: 061
     Dates: start: 20230814
  6. TOPICAL TREATMENT FOR ECZEMA LESIONS [Concomitant]
     Indication: Intertrigo
     Route: 061
     Dates: start: 20230712, end: 20230831

REACTIONS (5)
  - Thirst [Unknown]
  - Anhidrosis [Unknown]
  - Urinary retention [Unknown]
  - Anuria [Unknown]
  - Erythema [Unknown]

NARRATIVE: CASE EVENT DATE: 20230831
